FAERS Safety Report 25251547 (Version 2)
Quarter: 2025Q2

REPORT INFORMATION
  Report Type: Spontaneous
  Country: US (occurrence: US)
  Receive Date: 20250429
  Receipt Date: 20250429
  Transmission Date: 20250716
  Serious: No
  Sender: TRAVERE THERAPEUTICS
  Company Number: US-TRAVERE-2025TVT00410

PATIENT
  Age: 68 Year
  Sex: Female

DRUGS (2)
  1. FILSPARI [Suspect]
     Active Substance: SPARSENTAN
     Indication: IgA nephropathy
     Route: 048
     Dates: start: 202503
  2. FILSPARI [Suspect]
     Active Substance: SPARSENTAN
     Dosage: 200MG TABLETS TAKE 2 TABS DAILY
     Route: 048

REACTIONS (3)
  - Nasopharyngitis [Unknown]
  - Abdominal pain [None]
  - Diarrhoea [None]
